FAERS Safety Report 15695191 (Version 1)
Quarter: 2018Q4

REPORT INFORMATION
  Report Type: Spontaneous
  Country: US (occurrence: US)
  Receive Date: 20181206
  Receipt Date: 20181206
  Transmission Date: 20190205
  Serious: Yes (Other)
  Sender: FDA-Public Use
  Company Number: US-ENDO PHARMACEUTICALS INC-2018-042071

PATIENT
  Age: 45 Year
  Sex: Male
  Weight: 78.01 kg

DRUGS (3)
  1. XIAFLEX [Suspect]
     Active Substance: COLLAGENASE CLOSTRIDIUM HISTOLYTICUM
     Dosage: UNK CYCLE 1 INJECTION 2
     Route: 026
     Dates: start: 2018
  2. XIAFLEX [Suspect]
     Active Substance: COLLAGENASE CLOSTRIDIUM HISTOLYTICUM
     Dosage: UNK, CYCLE 1 INJECTION 1
     Route: 026
     Dates: start: 20180806
  3. XIAFLEX [Suspect]
     Active Substance: COLLAGENASE CLOSTRIDIUM HISTOLYTICUM
     Indication: PEYRONIE^S DISEASE
     Dosage: UNK CYCLE 2 INJECTION 1
     Route: 026
     Dates: start: 20180924, end: 20180924

REACTIONS (4)
  - Penile blister [Recovering/Resolving]
  - Penile haematoma [Recovered/Resolved]
  - Vein rupture [Recovering/Resolving]
  - Haematoma evacuation [Recovered/Resolved]

NARRATIVE: CASE EVENT DATE: 20180924
